FAERS Safety Report 4524489-2 (Version None)
Quarter: 2004Q4

REPORT INFORMATION
  Report Type: 
  Country: None (occurrence: None)
  Receive Date: 20041117
  Receipt Date: 20040114
  Transmission Date: 20050328
  Serious: Yes (Other)
  Sender: FDA-Public Use
  Company Number: US-JNJFOC-20031001624

PATIENT
  Age: 73 Year
  Sex: Male

DRUGS (9)
  1. LEVAQUIN [Suspect]
     Indication: PNEUMONIA
     Dosage: 500 MG, 1 IN 1 DAY, ORAL
     Route: 048
     Dates: start: 20030829, end: 20030915
  2. LEVAQUIN [Suspect]
     Indication: PNEUMONIA
     Dosage: 500 MG, 1 IN 1 DAY, ORAL
     Route: 048
     Dates: start: 20030927, end: 20031003
  3. ZEBETA [Concomitant]
  4. LIPITOR [Concomitant]
  5. ASPIRIN [Concomitant]
  6. PREVACID [Concomitant]
  7. ETOPOSIDE [Concomitant]
  8. CARBOPLATIN [Concomitant]
  9. PEGFILGRASTIM (FILGRASTIM) [Concomitant]

REACTIONS (1)
  - LIVER FUNCTION TEST ABNORMAL [None]
